FAERS Safety Report 6841154-7 (Version None)
Quarter: 2010Q3

REPORT INFORMATION
  Report Type: 
  Country: None (occurrence: None)
  Receive Date: 20100714
  Receipt Date: 20070628
  Transmission Date: 20110219
  Serious: No
  Sender: FDA-Public Use
  Company Number: US-PFIZER INC-2007054198

PATIENT
  Sex: Female
  Weight: 42.2 kg

DRUGS (5)
  1. CHANTIX [Suspect]
     Indication: SMOKING CESSATION THERAPY
     Route: 048
     Dates: start: 20070615
  2. THYROID TAB [Concomitant]
     Route: 048
  3. FUROSEMIDE [Concomitant]
     Route: 048
  4. CALCIUM [Concomitant]
     Route: 048
  5. MORPHINE SULFATE [Concomitant]
     Indication: BACK PAIN
     Route: 048

REACTIONS (2)
  - NAUSEA [None]
  - VOMITING [None]
